FAERS Safety Report 6336154-X (Version None)
Quarter: 2009Q3

REPORT INFORMATION
  Report Type: 
  Country: None (occurrence: None)
  Receive Date: 20090831
  Receipt Date: 20090831
  Transmission Date: 20100115
  Serious: No
  Sender: FDA-Public Use
  Company Number: None

PATIENT
  Sex: Male
  Weight: 76.9 kg

DRUGS (6)
  1. ONCASPAR [Suspect]
     Dosage: 4725 IU
     Dates: end: 20090526
  2. PREDNISONE [Suspect]
     Dosage: 3080 MG
     Dates: end: 20090621
  3. VINCRISTINE [Suspect]
     Dosage: 8 MG
     Dates: end: 20090615
  4. CYTARABINE [Suspect]
     Dosage: 70 MG
     Dates: end: 20090522
  5. DAUNORUBICIN HCL [Suspect]
     Dosage: 188 MG
     Dates: end: 20090615
  6. METHOTREXATE [Suspect]
     Dosage: 30 MG
     Dates: end: 20090625

REACTIONS (2)
  - HYPERBILIRUBINAEMIA [None]
  - HYPERGLYCAEMIA [None]
